FAERS Safety Report 10138023 (Version 1)
Quarter: 2014Q2

REPORT INFORMATION
  Report Type: Spontaneous
  Country: US (occurrence: None)
  Receive Date: 20140425
  Receipt Date: 20140425
  Transmission Date: 20141212
  Serious: Yes (Hospitalization, Other)
  Sender: FDA-Public Use
  Company Number: VAL_03074_2014

PATIENT
  Sex: Female

DRUGS (2)
  1. LOTENSIN /00909102/ [Suspect]
     Indication: HYPERTENSION
     Dosage: DF
  2. PROAIR HFA [Suspect]
     Indication: ASTHMA
     Dosage: DF

REACTIONS (5)
  - Fall [None]
  - Cerebral haematoma [None]
  - Asthma [None]
  - Contusion [None]
  - Dyspnoea [None]
